FAERS Safety Report 9092911 (Version 1)
Quarter: 2013Q1

REPORT INFORMATION
  Report Type: Spontaneous
  Country: US (occurrence: None)
  Receive Date: 20130213
  Receipt Date: 20130213
  Transmission Date: 20140127
  Serious: Yes (Other)
  Sender: FDA-Public Use
  Company Number: None

PATIENT
  Age: 68 Year
  Sex: Male
  Weight: 63.5 kg

DRUGS (1)
  1. FISH OIL [Suspect]
     Indication: BLOOD CHOLESTEROL INCREASED
     Dosage: 1 SOFTGEL   3 PER DAY  PO
     Route: 048
     Dates: start: 20120811, end: 20130111

REACTIONS (3)
  - Dizziness [None]
  - Balance disorder [None]
  - Fall [None]
